FAERS Safety Report 24366164 (Version 1)
Quarter: 2024Q3

REPORT INFORMATION
  Report Type: Report from Study
  Country: RU (occurrence: RU)
  Receive Date: 20240926
  Receipt Date: 20240926
  Transmission Date: 20241016
  Serious: Yes (Other)
  Sender: NOVARTIS
  Company Number: RU-002147023-NVSC2024RU182237

PATIENT
  Sex: Female

DRUGS (12)
  1. TAFINLAR [Suspect]
     Active Substance: DABRAFENIB MESYLATE
     Indication: Non-small cell lung cancer stage IV
     Dosage: 2 DOSAGE FORM, BID (2 CAPSULES)
     Route: 048
     Dates: start: 202305
  2. TAFINLAR [Suspect]
     Active Substance: DABRAFENIB MESYLATE
     Indication: Metastases to pleura
     Dosage: 75 MG, BID (2 CAPSULES)
     Route: 048
     Dates: start: 20230531, end: 20240316
  3. TAFINLAR [Suspect]
     Active Substance: DABRAFENIB MESYLATE
     Indication: BRAF V600E mutation positive
  4. MEKINIST [Suspect]
     Active Substance: TRAMETINIB DIMETHYL SULFOXIDE
     Indication: Non-small cell lung cancer stage IV
     Dosage: 1 DOSAGE FORM, QD (1 TABLET)
     Route: 048
     Dates: start: 202305
  5. MEKINIST [Suspect]
     Active Substance: TRAMETINIB DIMETHYL SULFOXIDE
     Indication: Metastases to pleura
     Dosage: 1 DOSAGE FORM, QD (1 TABLET)
     Route: 048
     Dates: start: 20230531, end: 20240316
  6. MEKINIST [Suspect]
     Active Substance: TRAMETINIB DIMETHYL SULFOXIDE
     Indication: BRAF V600E mutation positive
  7. INSULIN HUMAN [Concomitant]
     Active Substance: INSULIN HUMAN
     Indication: Product used for unknown indication
     Dosage: 28 U PER DAY
     Route: 065
  8. INSULIN HUMAN [Concomitant]
     Active Substance: INSULIN HUMAN
     Indication: Product used for unknown indication
     Dosage: 30 U PER DAY
     Route: 065
  9. BISOPROLOL FUMARATE [Concomitant]
     Active Substance: BISOPROLOL FUMARATE
     Indication: Product used for unknown indication
     Dosage: 1 DOSAGE FORM
     Route: 065
  10. CARDIOMAGNYL [Concomitant]
     Active Substance: ASPIRIN\MAGNESIUM HYDROXIDE
     Indication: Product used for unknown indication
     Dosage: 1 DOSAGE FORM
     Route: 065
  11. ENALAPRIL [Concomitant]
     Active Substance: ENALAPRIL
     Indication: Product used for unknown indication
     Dosage: 1 DOSAGE FORM
     Route: 065
  12. OMNOPON [Concomitant]
     Indication: Pain
     Dosage: 1.0 UP TO 8 TIMES PER DAY
     Route: 065

REACTIONS (4)
  - Pneumonia [Recovered/Resolved]
  - Productive cough [Recovered/Resolved]
  - Body temperature increased [Recovered/Resolved]
  - Lung opacity [Unknown]

NARRATIVE: CASE EVENT DATE: 20240316
